FAERS Safety Report 13659528 (Version 1)
Quarter: 2017Q2

REPORT INFORMATION
  Report Type: Spontaneous
  Country: US (occurrence: US)
  Receive Date: 20170615
  Receipt Date: 20170615
  Transmission Date: 20170830
  Serious: No
  Sender: FDA-Public Use
  Company Number: None

PATIENT
  Age: 31 Year
  Sex: Female
  Weight: 74.91 kg

DRUGS (7)
  1. SELENIUM [Concomitant]
     Active Substance: SELENIUM
  2. OMEGA3 [Concomitant]
  3. D [Concomitant]
  4. B MULTIVITAMIN [Concomitant]
  5. LEVOTHYROXIN [Concomitant]
     Active Substance: LEVOTHYROXINE
  6. PARAGARD T 380A [Suspect]
     Active Substance: COPPER
  7. GLUTAMINE [Concomitant]
     Active Substance: GLUTAMINE

REACTIONS (5)
  - Menorrhagia [None]
  - Hypersomnia [None]
  - Fatigue [None]
  - Ovulation pain [None]
  - Dysmenorrhoea [None]

NARRATIVE: CASE EVENT DATE: 20140901
